FAERS Safety Report 15984427 (Version 4)
Quarter: 2019Q2

REPORT INFORMATION
  Report Type: Spontaneous
  Country: US (occurrence: US)
  Receive Date: 20190220
  Receipt Date: 20190524
  Transmission Date: 20190711
  Serious: Yes (Other)
  Sender: FDA-Public Use
  Company Number: US-ASTRAZENECA-2018SF21541

PATIENT
  Age: 857 Month
  Sex: Female

DRUGS (22)
  1. PRILOSEC OTC [Suspect]
     Active Substance: OMEPRAZOLE MAGNESIUM
     Route: 048
     Dates: start: 2003, end: 2015
  2. PROTONIX [Suspect]
     Active Substance: PANTOPRAZOLE SODIUM
     Route: 065
  3. ANASTROZOLE. [Concomitant]
     Active Substance: ANASTROZOLE
  4. PROTONIX [Suspect]
     Active Substance: PANTOPRAZOLE SODIUM
     Route: 065
     Dates: start: 2000, end: 2015
  5. AMOXICILLIN. [Concomitant]
     Active Substance: AMOXICILLIN
  6. JANUVIA [Concomitant]
     Active Substance: SITAGLIPTIN PHOSPHATE
  7. PROMETHAZINE [Concomitant]
     Active Substance: PROMETHAZINE\PROMETHAZINE HYDROCHLORIDE
  8. CEPHALEXIN. [Concomitant]
     Active Substance: CEPHALEXIN
  9. ALLOPURINOL. [Concomitant]
     Active Substance: ALLOPURINOL
  10. METFORMIN [Concomitant]
     Active Substance: METFORMIN HYDROCHLORIDE
  11. NOVOLOG [Concomitant]
     Active Substance: INSULIN ASPART
  12. VALSARTAN. [Concomitant]
     Active Substance: VALSARTAN
  13. NEXIUM [Suspect]
     Active Substance: ESOMEPRAZOLE MAGNESIUM
     Route: 048
     Dates: start: 2001, end: 2015
  14. PRILOSEC [Suspect]
     Active Substance: OMEPRAZOLE MAGNESIUM
     Route: 048
     Dates: start: 1989, end: 2015
  15. ZOCOR [Concomitant]
     Active Substance: SIMVASTATIN
  16. MICARDIS [Concomitant]
     Active Substance: TELMISARTAN
  17. TETRACYCLINE [Concomitant]
     Active Substance: TETRACYCLINE
  18. CLONIDINE. [Concomitant]
     Active Substance: CLONIDINE
  19. COLCHICINE. [Concomitant]
     Active Substance: COLCHICINE
  20. PREVACID [Suspect]
     Active Substance: LANSOPRAZOLE
     Route: 065
     Dates: start: 1995, end: 2015
  21. FLUCONAZOLE. [Concomitant]
     Active Substance: FLUCONAZOLE
  22. AMLODIPINE [Concomitant]
     Active Substance: AMLODIPINE BESYLATE

REACTIONS (5)
  - Renal injury [Unknown]
  - Nephrogenic anaemia [Unknown]
  - Hyperparathyroidism secondary [Unknown]
  - Chronic kidney disease [Not Recovered/Not Resolved]
  - Acute kidney injury [Not Recovered/Not Resolved]

NARRATIVE: CASE EVENT DATE: 201505
